FAERS Safety Report 25326525 (Version 2)
Quarter: 2025Q2

REPORT INFORMATION
  Report Type: Spontaneous
  Country: US (occurrence: US)
  Receive Date: 20250516
  Receipt Date: 20250604
  Transmission Date: 20250717
  Serious: No
  Sender: SANOFI AVENTIS
  Company Number: US-SA-2025SA139713

PATIENT
  Age: 6 Year
  Sex: Female
  Weight: 18.64 kg

DRUGS (1)
  1. XENPOZYME [Suspect]
     Active Substance: OLIPUDASE ALFA-RPCP
     Indication: Niemann-Pick disease
     Dosage: 48 MG, QOW (IN 100 ML OF NORMAL SALINE (TOTAL VOLUME) OVER 4 HOURS VIA INFUSION PUMP)
     Route: 042
     Dates: start: 202409

REACTIONS (1)
  - Incorrect dose administered [Unknown]
